FAERS Safety Report 23555000 (Version 2)
Quarter: 2024Q2

REPORT INFORMATION
  Report Type: Spontaneous
  Country: US (occurrence: US)
  Receive Date: 20240222
  Receipt Date: 20240411
  Transmission Date: 20240716
  Serious: No
  Sender: FDA-Public Use
  Company Number: US-MYLANLABS-2024M1014074

PATIENT
  Sex: Female

DRUGS (1)
  1. TYRVAYA [Suspect]
     Active Substance: VARENICLINE TARTRATE
     Indication: Dry eye
     Dosage: TWO SPRAYS ON EACH NOSTRIL ONCE A DAY;
     Route: 045

REACTIONS (3)
  - Drug ineffective [Unknown]
  - Product packaging quantity issue [Unknown]
  - Off label use [Unknown]
